FAERS Safety Report 11421505 (Version 2)
Quarter: 2015Q4

REPORT INFORMATION
  Report Type: Spontaneous
  Country: US (occurrence: US)
  Receive Date: 20150826
  Receipt Date: 20151005
  Transmission Date: 20160304
  Serious: Yes (Other)
  Sender: FDA-Public Use
  Company Number: US-AMGEN-USASP2015085988

PATIENT
  Age: 21 Year
  Sex: Male
  Weight: 113.38 kg

DRUGS (2)
  1. NEULASTA [Suspect]
     Active Substance: PEGFILGRASTIM
     Indication: PRODUCT USED FOR UNKNOWN INDICATION
     Dosage: UNK
     Route: 065
  2. NEULASTA [Suspect]
     Active Substance: PEGFILGRASTIM
     Dosage: 6 MG, 8/20
     Route: 058
     Dates: start: 20150819, end: 20150820

REACTIONS (3)
  - Device dislocation [Recovered/Resolved]
  - Device failure [Unknown]
  - Injection site pain [Unknown]

NARRATIVE: CASE EVENT DATE: 20150819
